FAERS Safety Report 17806725 (Version 1)
Quarter: 2020Q2

REPORT INFORMATION
  Report Type: Spontaneous
  Country: US (occurrence: US)
  Receive Date: 20200519
  Receipt Date: 20200519
  Transmission Date: 20200714
  Serious: Yes (Death, Other)
  Sender: FDA-Public Use
  Company Number: None

PATIENT
  Age: 72 Year
  Sex: Male
  Weight: 99.6 kg

DRUGS (21)
  1. REMDESIVIR. [Suspect]
     Active Substance: REMDESIVIR
     Indication: PNEUMONIA
     Route: 042
     Dates: start: 20200513, end: 20200517
  2. METHYLPREDNISOLONE 60 MG IV Q12H [Concomitant]
     Dates: start: 20200507, end: 20200517
  3. LEVOPHED INFUSION [Concomitant]
     Dates: start: 20200518, end: 20200519
  4. DOPAMINE INFUSION [Concomitant]
     Dates: start: 20200519, end: 20200519
  5. PHENYLEPHRINE INFUSION [Concomitant]
     Dates: start: 20200518, end: 20200519
  6. SODIUM BICARB 150 MEQ/SWI 1L AT 150 ML/HR [Concomitant]
     Dates: start: 20200518, end: 20200519
  7. DEXMEDETOMIDE DRIP [Concomitant]
     Dates: start: 20200512, end: 20200513
  8. ENOXAPARIN 100 MG SUBQ Q12H [Concomitant]
     Dates: start: 20200508, end: 20200517
  9. METHYLPREDNISOLONE 40 MG IV Q12H [Concomitant]
     Dates: start: 20200517, end: 20200519
  10. EPINEPHRINE INFUSION [Concomitant]
     Active Substance: EPINEPHRINE
     Dates: start: 20200519, end: 20200519
  11. LORAZEPAM 2 MG IV Q4H PRN [Concomitant]
     Dates: start: 20200512, end: 20200519
  12. HEPARIN LOW INTENSITY INFUSION [Concomitant]
     Dates: start: 20200518, end: 20200519
  13. EPOPROSTENOL FOR INHALATION [Concomitant]
     Dates: start: 20200518, end: 20200519
  14. VANCOMYCIN [Concomitant]
     Active Substance: VANCOMYCIN
     Dates: start: 20200518, end: 20200519
  15. MORPHINE INFUSION [Concomitant]
     Dates: start: 20200515, end: 20200519
  16. INSULIN [Concomitant]
     Active Substance: INSULIN NOS
     Dates: start: 20200509, end: 20200517
  17. PIPERACILLIN/TAZOBACTAM [Concomitant]
     Active Substance: PIPERACILLIN SODIUM\TAZOBACTAM SODIUM
     Dates: start: 20200518, end: 20200519
  18. KETAMINE INFUSION [Concomitant]
     Active Substance: KETAMINE
     Dates: start: 20200513, end: 20200516
  19. TOCILIZUMAB 800 MG IV X1 DOSE [Concomitant]
     Dates: start: 20200506, end: 20200506
  20. AMIODARONE IV [Concomitant]
     Dates: start: 20200517, end: 20200518
  21. ROCURONIUM INFUSION [Concomitant]
     Dates: start: 20200517, end: 20200519

REACTIONS (8)
  - Acidosis [None]
  - Metabolic acidosis [None]
  - Respiratory acidosis [None]
  - Hypernatraemia [None]
  - Acute kidney injury [None]
  - Cardiac arrest [None]
  - Paralysis [None]
  - Respiratory failure [None]

NARRATIVE: CASE EVENT DATE: 20200516
